FAERS Safety Report 5328181-6 (Version None)
Quarter: 2007Q2

REPORT INFORMATION
  Report Type: 
  Country: None (occurrence: None)
  Receive Date: 20070514
  Receipt Date: 20070426
  Transmission Date: 20071010
  Serious: Yes (Other)
  Sender: FDA-Public Use
  Company Number: TCI2007A01338

PATIENT
  Sex: Male

DRUGS (3)
  1. BASEN (VOGLIBOSE) [Suspect]
     Indication: DIABETES MELLITUS
     Dosage: UNK. PER ORAL
     Route: 048
     Dates: start: 20070214, end: 20070312
  2. ACTOS [Suspect]
     Indication: DIABETES MELLITUS
     Dosage: UNK. PER ORAL
     Route: 048
     Dates: start: 20070116, end: 20070301
  3. TICLOPIDINE HCL [Suspect]
     Dosage: PER ORAL
     Route: 048
     Dates: start: 20000101

REACTIONS (1)
  - PLATELET COUNT DECREASED [None]
